FAERS Safety Report 8386769-2 (Version None)
Quarter: 2012Q2

REPORT INFORMATION
  Report Type: 
  Country: None (occurrence: None)
  Receive Date: 20120525
  Receipt Date: 20120522
  Transmission Date: 20120825
  Serious: Yes (Hospitalization, Other)
  Sender: FDA-Public Use
  Company Number: BE-ABBOTT-11P-013-0866497-00

PATIENT
  Sex: Female

DRUGS (2)
  1. METHOTREXATE [Suspect]
     Indication: RHEUMATOID ARTHRITIS
     Dosage: 15MG/WEEK
     Dates: start: 20030101, end: 20100501
  2. HUMIRA [Suspect]
     Indication: RHEUMATOID ARTHRITIS
     Dates: start: 20060120

REACTIONS (8)
  - ABDOMINAL PAIN UPPER [None]
  - PULMONARY FIBROSIS [None]
  - ULCER [None]
  - APLASTIC ANAEMIA [None]
  - BRONCHIECTASIS [None]
  - IRON DEFICIENCY ANAEMIA [None]
  - HERNIA [None]
  - MELAENA [None]
